FAERS Safety Report 4456125-8 (Version None)
Quarter: 2004Q3

REPORT INFORMATION
  Report Type: 
  Country: None (occurrence: None)
  Receive Date: 20040920
  Receipt Date: 20040907
  Transmission Date: 20050211
  Serious: No
  Sender: FDA-Public Use
  Company Number: 04H-007-0272728-00

PATIENT

DRUGS (1)
  1. VERAPAMIL HYDROCHLORIDE INJECTION (VERAPAMIL HYDROCHLORIDE) (VERAPAMIL [Suspect]
     Indication: SUPRAVENTRICULAR TACHYCARDIA
     Dosage: 75 MCG/KG, INTRAVENOUS
     Route: 042

REACTIONS (1)
  - TRANSIENT ISCHAEMIC ATTACK [None]
